FAERS Safety Report 6405242-1 (Version None)
Quarter: 2009Q4

REPORT INFORMATION
  Report Type: 
  Country: None (occurrence: None)
  Receive Date: 20091014
  Receipt Date: 20090930
  Transmission Date: 20100525
  Serious: Yes (Hospitalization)
  Sender: FDA-Public Use
  Company Number: 2009AC000089

PATIENT
  Age: 57 Year
  Sex: Female

DRUGS (11)
  1. DIGOXIN [Suspect]
     Dosage: 0.125 MG;QD;PO
     Route: 048
  2. ACCUPRIL [Concomitant]
  3. COREG [Concomitant]
  4. NEPHROCAPS [Concomitant]
  5. EFFEXOR [Concomitant]
  6. AMBIEN [Concomitant]
  7. HYDROXYZINE [Concomitant]
  8. LORCET-HD [Concomitant]
  9. PHOSLO [Concomitant]
  10. IMDUR [Concomitant]
  11. INSULIN [Concomitant]

REACTIONS (3)
  - MULTIPLE INJURIES [None]
  - MUSCULAR WEAKNESS [None]
  - PAIN [None]
